FAERS Safety Report 21196916 (Version 1)
Quarter: 2022Q3

REPORT INFORMATION
  Report Type: Spontaneous
  Country: US (occurrence: None)
  Receive Date: 20220810
  Receipt Date: 20220810
  Transmission Date: 20221027
  Serious: Yes (Other)
  Sender: FDA-Public Use
  Company Number: None

PATIENT
  Age: 41 Year
  Sex: Female

DRUGS (4)
  1. BRUT CLASSIC ANTI-PERSPIRANT AND DEODORANT ORIGINAL FRAGRANCE [Suspect]
     Active Substance: ALUMINUM CHLOROHYDRATE
     Indication: Skin odour abnormal
     Dates: start: 20220606, end: 20220718
  2. BRUT CLASSIC ANTI-PERSPIRANT AND DEODORANT [Suspect]
     Active Substance: ALUMINUM ZIRCONIUM TETRACHLOROHYDREX GLY
  3. SURE ANTIPERSPIRANT DEODORANT UNSCENTED [Suspect]
     Active Substance: ALUMINUM CHLOROHYDRATE
  4. SURE ORIGINAL SOLID REGULAR [Suspect]
     Active Substance: ALUMINUM ZIRCONIUM TRICHLOROHYDREX GLY

REACTIONS (1)
  - Injury [None]

NARRATIVE: CASE EVENT DATE: 20220607
